FAERS Safety Report 17938125 (Version 1)
Quarter: 2020Q2

REPORT INFORMATION
  Report Type: Spontaneous
  Country: DE (occurrence: DE)
  Receive Date: 20200624
  Receipt Date: 20200624
  Transmission Date: 20200714
  Serious: Yes (Hospitalization)
  Sender: FDA-Public Use
  Company Number: DE-MYLANLABS-2020M1057655

PATIENT
  Age: 67 Year
  Sex: Female
  Weight: 56.4 kg

DRUGS (11)
  1. METAMIZOL                          /06276701/ [Concomitant]
     Active Substance: METAMIZOLE
     Dosage: 500 MILLIGRAM (BEDARF)
  2. MAGNESIUM VERLA                    /01486801/ [Concomitant]
     Dosage: UNK, QD,0-1-0-0
  3. SPIRONOLACTON [Concomitant]
     Active Substance: SPIRONOLACTONE
     Dosage: 50 MILLIGRAM, BID (1-0-1-0)
  4. FOLIC ACID. [Concomitant]
     Active Substance: FOLIC ACID
     Dosage: UNK, QD,1-0-0-0
  5. XIPAMID [Suspect]
     Active Substance: XIPAMIDE
     Indication: PRODUCT USED FOR UNKNOWN INDICATION
     Dosage: 40 MILLIGRAM, QD (1-0-0-0)
  6. ALLOPURINOL. [Concomitant]
     Active Substance: ALLOPURINOL
     Dosage: 10 MILLIGRAM, QD, 1-0-0-0
  7. MARCUMAR [Suspect]
     Active Substance: PHENPROCOUMON
     Indication: PRODUCT USED FOR UNKNOWN INDICATION
     Dosage: INR
  8. METOPROLOL. [Concomitant]
     Active Substance: METOPROLOL
     Dosage: 47.5 MILLIGRAM ( 0-2-0-0)
  9. KALIUM                             /00031401/ [Concomitant]
     Active Substance: POTASSIUM CHLORIDE
     Dosage: BEDARF, KAPSELN
  10. TORASEMIDE [Suspect]
     Active Substance: TORSEMIDE
     Indication: PRODUCT USED FOR UNKNOWN INDICATION
     Dosage: 20 MILLIGRAM, TID,1-1-1-0
  11. PANTOPRAZOL                        /01263201/ [Concomitant]
     Active Substance: PANTOPRAZOLE
     Dosage: 20 MILLIGRAM, QD,1-0-0-0

REACTIONS (9)
  - Asthenia [Unknown]
  - Sputum discoloured [Unknown]
  - Oedema peripheral [Unknown]
  - Anaemia [Unknown]
  - Haematochezia [Unknown]
  - Diverticulum intestinal haemorrhagic [Unknown]
  - Frequent bowel movements [Unknown]
  - Nasopharyngitis [Unknown]
  - Dyspnoea [Unknown]
